FAERS Safety Report 14444656 (Version 2)
Quarter: 2018Q2

REPORT INFORMATION
  Report Type: Spontaneous
  Country: BE (occurrence: BE)
  Receive Date: 20180126
  Receipt Date: 20180405
  Transmission Date: 20180711
  Serious: Yes (Hospitalization)
  Sender: FDA-Public Use
  Company Number: BE-ABBVIE-18P-013-2236684-00

PATIENT
  Age: 24 Month
  Sex: Female

DRUGS (1)
  1. DEPAKINE [Suspect]
     Active Substance: VALPROATE SODIUM
     Indication: EPILEPSY
     Route: 048
     Dates: start: 20171116, end: 20171120

REACTIONS (3)
  - Hypersomnia [Recovered/Resolved]
  - Wrong strength [Unknown]
  - Medication error [Unknown]

NARRATIVE: CASE EVENT DATE: 20171119
